FAERS Safety Report 10404063 (Version 2)
Quarter: 2014Q4

REPORT INFORMATION
  Report Type: Spontaneous
  Country: US (occurrence: US)
  Receive Date: 20140823
  Receipt Date: 20141013
  Transmission Date: 20150528
  Serious: Yes (Other)
  Sender: FDA-Public Use
  Company Number: US-009507513-1408USA008020

PATIENT
  Sex: Female

DRUGS (1)
  1. NUVARING [Suspect]
     Active Substance: ETHINYL ESTRADIOL\ETONOGESTREL
     Indication: CONTRACEPTION
     Dosage: UNK
     Route: 067
     Dates: start: 2006, end: 200808

REACTIONS (12)
  - Abortion spontaneous [Unknown]
  - Bunion operation [Unknown]
  - Gastrooesophageal reflux disease [Unknown]
  - Deep vein thrombosis [Recovered/Resolved]
  - Appendicectomy [Unknown]
  - Post thrombotic syndrome [Unknown]
  - Anxiety [Unknown]
  - Asthma [Unknown]
  - Maternal exposure before pregnancy [Unknown]
  - Appendicitis [Unknown]
  - Menstruation irregular [Unknown]
  - Arthralgia [Unknown]

NARRATIVE: CASE EVENT DATE: 2007
